FAERS Safety Report 10677784 (Version 1)
Quarter: 2014Q4

REPORT INFORMATION
  Report Type: Spontaneous
  Country: DE (occurrence: DE)
  Receive Date: 20141229
  Receipt Date: 20141229
  Transmission Date: 20150529
  Serious: Yes (Other)
  Sender: FDA-Public Use
  Company Number: DE-DRREDDYS-GER/GER/14/0045081

PATIENT
  Age: 49 Year
  Sex: Female
  Weight: 70 kg

DRUGS (2)
  1. CIPROFLOXACIN. [Suspect]
     Active Substance: CIPROFLOXACIN
     Indication: CYSTITIS NONINFECTIVE
     Dates: start: 201303
  2. CIPROBAY [Suspect]
     Active Substance: CIPROFLOXACIN
     Indication: CYSTITIS NONINFECTIVE
     Dates: start: 2012

REACTIONS (25)
  - Arthritis [Recovering/Resolving]
  - Depression [Recovering/Resolving]
  - Exercise tolerance decreased [Recovering/Resolving]
  - Alopecia [Recovering/Resolving]
  - Blood pressure increased [Recovering/Resolving]
  - Muscular weakness [Recovering/Resolving]
  - Insomnia [Recovering/Resolving]
  - Neck pain [Recovering/Resolving]
  - Pain in extremity [Recovering/Resolving]
  - Tremor [Recovering/Resolving]
  - Skin burning sensation [Recovering/Resolving]
  - Arthralgia [Recovering/Resolving]
  - Hypertonia [Recovering/Resolving]
  - Lymphadenopathy [Recovering/Resolving]
  - Nausea [Recovering/Resolving]
  - Palpitations [Recovering/Resolving]
  - Myalgia [Recovering/Resolving]
  - Peripheral swelling [Recovering/Resolving]
  - Tendonitis [Recovering/Resolving]
  - Disturbance in attention [Recovering/Resolving]
  - Joint swelling [Recovering/Resolving]
  - Panic attack [Recovering/Resolving]
  - Tenosynovitis [Recovering/Resolving]
  - Ear discomfort [Recovering/Resolving]
  - Musculoskeletal stiffness [Recovering/Resolving]

NARRATIVE: CASE EVENT DATE: 2012
